APPROVED DRUG PRODUCT: MELOXICAM
Active Ingredient: MELOXICAM
Strength: 10MG
Dosage Form/Route: CAPSULE;ORAL
Application: A211398 | Product #002 | TE Code: AB
Applicant: NOVITIUM PHARMA LLC
Approved: Mar 9, 2021 | RLD: No | RS: No | Type: RX